FAERS Safety Report 5910984-8 (Version None)
Quarter: 2008Q4

REPORT INFORMATION
  Report Type: 
  Country: None (occurrence: None)
  Receive Date: 20081003
  Receipt Date: 20081003
  Transmission Date: 20090506
  Serious: Yes (Life-Threatening, Other)
  Sender: FDA-Public Use
  Company Number: None

PATIENT
  Age: 52 Year
  Sex: Male
  Weight: 108.8633 kg

DRUGS (1)
  1. EFFEXOR XR [Suspect]
     Indication: DEPRESSION
     Dosage: 225MG DAILY PO
     Route: 048

REACTIONS (5)
  - AGGRESSION [None]
  - DEPRESSION [None]
  - DRUG DEPENDENCE [None]
  - FEAR [None]
  - WITHDRAWAL SYNDROME [None]
